FAERS Safety Report 6361320-7 (Version None)
Quarter: 2009Q3

REPORT INFORMATION
  Report Type: 
  Country: None (occurrence: None)
  Receive Date: 20090918
  Receipt Date: 20090914
  Transmission Date: 20100115
  Serious: Yes (Death, Hospitalization)
  Sender: FDA-Public Use
  Company Number: A0797113A

PATIENT
  Age: 70 Year
  Sex: Male

DRUGS (8)
  1. TWINRIX [Suspect]
     Indication: PROPHYLAXIS
     Route: 065
     Dates: start: 20070723, end: 20070723
  2. COREG [Suspect]
     Dosage: 3.25MG TWICE PER DAY
     Route: 048
  3. WARFARIN SODIUM [Suspect]
     Indication: ANTICOAGULANT THERAPY
  4. COUMADIN [Concomitant]
  5. PRINIVIL [Concomitant]
  6. ASCORBIC ACID [Concomitant]
  7. UNKNOWN MEDICATION [Concomitant]
  8. ORAL POLIO VACCINE [Concomitant]
     Indication: PROPHYLAXIS
     Route: 048

REACTIONS (5)
  - CEREBROVASCULAR ACCIDENT [None]
  - CHILLS [None]
  - FATIGUE [None]
  - HEADACHE [None]
  - SUBDURAL HAEMATOMA [None]
